FAERS Safety Report 15466452 (Version 1)
Quarter: 2018Q4

REPORT INFORMATION
  Report Type: Report from Study
  Country: TR (occurrence: TR)
  Receive Date: 20181004
  Receipt Date: 20181004
  Transmission Date: 20190204
  Serious: Yes (Hospitalization)
  Sender: FDA-Public Use
  Company Number: TR-UCBSA-2018044397

PATIENT
  Sex: Female

DRUGS (1)
  1. CERTOLIZUMAB PEGOL [Suspect]
     Active Substance: CERTOLIZUMAB PEGOL
     Indication: ANKYLOSING SPONDYLITIS
     Dosage: 200 MG, UNK
     Dates: start: 20180301

REACTIONS (3)
  - Eye movement disorder [Unknown]
  - Dizziness [Unknown]
  - Vomiting [Unknown]

NARRATIVE: CASE EVENT DATE: 20180925
